FAERS Safety Report 9689458 (Version 1)
Quarter: 2013Q4

REPORT INFORMATION
  Report Type: Spontaneous
  Country: FR (occurrence: FR)
  Receive Date: 20131114
  Receipt Date: 20131114
  Transmission Date: 20140711
  Serious: Yes (Life-Threatening)
  Sender: FDA-Public Use
  Company Number: PHHY2013FR130063

PATIENT
  Age: 71 Year
  Sex: Female

DRUGS (7)
  1. TEGRETOL LP [Suspect]
     Dosage: 400 MG, BID
  2. MOPRAL [Interacting]
     Dosage: 20 MG, UNK
  3. PRADAXA [Interacting]
     Indication: ATRIAL FIBRILLATION
     Dosage: 2 DF, QD
     Route: 048
     Dates: start: 201303
  4. AMLOR [Concomitant]
     Dosage: 5 MG, QD
  5. PARACETAMOL [Concomitant]
     Dosage: 2 DF, TID
  6. KEPPRA [Concomitant]
     Dosage: 500 MG, QID
  7. ATENOLOL [Concomitant]
     Dosage: 50 MG, QD

REACTIONS (1)
  - Deep vein thrombosis [Unknown]
